FAERS Safety Report 10794337 (Version 4)
Quarter: 2019Q3

REPORT INFORMATION
  Report Type: Spontaneous
  Country: US (occurrence: US)
  Receive Date: 20150213
  Receipt Date: 20190826
  Transmission Date: 20191004
  Serious: No
  Sender: FDA-Public Use
  Company Number: US-PFIZER INC-2015051758

PATIENT
  Age: 45 Year
  Sex: Female
  Weight: 75 kg

DRUGS (8)
  1. LYRICA [Suspect]
     Active Substance: PREGABALIN
     Indication: FIBROMYALGIA
     Dosage: 100 MG, 3X/DAY
     Route: 048
     Dates: start: 2002, end: 20150202
  2. LYRICA [Suspect]
     Active Substance: PREGABALIN
     Dosage: 100 MG, 3X/DAY (1 CAPSULE BY MOUTH 3 TIMES DAILY)
     Route: 048
     Dates: start: 20190719, end: 2019
  3. COSOPT [Concomitant]
     Active Substance: DORZOLAMIDE HYDROCHLORIDE\TIMOLOL MALEATE
     Indication: GLAUCOMA
     Dosage: UNK
  4. ESTRADIOL. [Concomitant]
     Active Substance: ESTRADIOL
     Indication: HORMONE REPLACEMENT THERAPY
     Dosage: 1 MG, 1X/DAY
     Dates: start: 2000
  5. COLACE [Concomitant]
     Active Substance: DOCUSATE SODIUM
     Indication: ABNORMAL FAECES
     Dosage: UNK, 1X/DAY
     Route: 048
     Dates: start: 2000
  6. TRAVATAN [Concomitant]
     Active Substance: TRAVOPROST
     Indication: GLAUCOMA
     Dosage: UNK
  7. IBUPROFEN. [Concomitant]
     Active Substance: IBUPROFEN
     Indication: BACK PAIN
     Dosage: 100 MG, UNK TWO OF THEM FROM 2 TO FOUR TIMES A DAY
  8. AMITRIPTYLINE [Concomitant]
     Active Substance: AMITRIPTYLINE
     Indication: PAIN
     Dosage: 50 MG, 1X/DAY
     Route: 048
     Dates: start: 2001

REACTIONS (9)
  - Diarrhoea [Unknown]
  - Insomnia [Not Recovered/Not Resolved]
  - Off label use [Unknown]
  - Chest discomfort [Not Recovered/Not Resolved]
  - Chills [Recovered/Resolved]
  - Abdominal discomfort [Unknown]
  - Dysarthria [Unknown]
  - Intentional product use issue [Unknown]
  - Malaise [Unknown]

NARRATIVE: CASE EVENT DATE: 2002
